FAERS Safety Report 5976442-X (Version None)
Quarter: 2008Q4

REPORT INFORMATION
  Report Type: 
  Country: None (occurrence: None)
  Receive Date: 20081126
  Receipt Date: 20081121
  Transmission Date: 20090506
  Serious: Yes (Other)
  Sender: FDA-Public Use
  Company Number: APP200801175

PATIENT
  Sex: Male

DRUGS (4)
  1. HEPARIN SODIUM INJECTION [Suspect]
     Indication: CARDIAC OPERATION
     Dosage: 25000 USP UNITS ONCE, INTRAVENOUS, 2000 USP UNITS, ONCE, INTRAVENOUS BOLUS, 10000 USP UNITS, ONCE, I
     Route: 040
     Dates: start: 20080101, end: 20080101
  2. HEPARIN SODIUM INJECTION [Suspect]
     Indication: CARDIAC OPERATION
     Dosage: 25000 USP UNITS ONCE, INTRAVENOUS, 2000 USP UNITS, ONCE, INTRAVENOUS BOLUS, 10000 USP UNITS, ONCE, I
     Route: 040
     Dates: start: 20080101, end: 20080101
  3. HEPARIN SODIUM INJECTION [Suspect]
     Indication: CARDIAC OPERATION
     Dosage: 25000 USP UNITS ONCE, INTRAVENOUS, 2000 USP UNITS, ONCE, INTRAVENOUS BOLUS, 10000 USP UNITS, ONCE, I
     Route: 040
     Dates: start: 20080101, end: 20080101
  4. .. [Concomitant]

REACTIONS (2)
  - DRUG INEFFECTIVE [None]
  - PRODUCT QUALITY ISSUE [None]
